FAERS Safety Report 13573462 (Version 2)
Quarter: 2017Q3

REPORT INFORMATION
  Report Type: Spontaneous
  Country: GB (occurrence: GB)
  Receive Date: 20170523
  Receipt Date: 20170705
  Transmission Date: 20171127
  Serious: Yes (Other)
  Sender: FDA-Public Use
  Company Number: GB-JNJFOC-20170518333

PATIENT

DRUGS (1)
  1. REZOLSTA [Suspect]
     Active Substance: COBICISTAT\DARUNAVIR ETHANOLATE
     Indication: HIV INFECTION
     Route: 048

REACTIONS (13)
  - Abnormal dreams [Not Recovered/Not Resolved]
  - Hepatitis C [Unknown]
  - Disturbance in attention [Unknown]
  - Myalgia [Not Recovered/Not Resolved]
  - Vomiting [Not Recovered/Not Resolved]
  - Rash [Not Recovered/Not Resolved]
  - Diarrhoea [Not Recovered/Not Resolved]
  - Dry mouth [Not Recovered/Not Resolved]
  - Headache [Not Recovered/Not Resolved]
  - Product size issue [Unknown]
  - Hyperhidrosis [Not Recovered/Not Resolved]
  - Memory impairment [Unknown]
  - Nausea [Not Recovered/Not Resolved]
